FAERS Safety Report 19194272 (Version 4)
Quarter: 2025Q2

REPORT INFORMATION
  Report Type: Report from Study
  Country: US (occurrence: US)
  Receive Date: 20210429
  Receipt Date: 20250404
  Transmission Date: 20250717
  Serious: Yes (Hospitalization, Other)
  Sender: TAKEDA
  Company Number: US-TAKEDA-US201932387

PATIENT
  Age: 42 Year
  Sex: Female

DRUGS (5)
  1. PARATHYROID HORMONE [Suspect]
     Active Substance: PARATHYROID HORMONE
     Indication: Hypoparathyroidism
     Dosage: 75 MICROGRAM, QD
     Dates: start: 20151028, end: 20250312
  2. PARATHYROID HORMONE [Suspect]
     Active Substance: PARATHYROID HORMONE
  3. PARATHYROID HORMONE [Suspect]
     Active Substance: PARATHYROID HORMONE
  4. PARATHYROID HORMONE [Suspect]
     Active Substance: PARATHYROID HORMONE
  5. PARATHYROID HORMONE [Suspect]
     Active Substance: PARATHYROID HORMONE

REACTIONS (2)
  - Gastrooesophageal reflux disease [Not Recovered/Not Resolved]
  - Product temperature excursion issue [Unknown]

NARRATIVE: CASE EVENT DATE: 20240802
